FAERS Safety Report 14242817 (Version 10)
Quarter: 2021Q3

REPORT INFORMATION
  Report Type: Report from Study
  Country: None (occurrence: JP)
  Receive Date: 20171201
  Receipt Date: 20210917
  Transmission Date: 20211014
  Serious: Yes (Hospitalization, Other)
  Sender: FDA-Public Use
  Company Number: JP-ABBVIE-17K-087-2181140-00

PATIENT
  Age: 76 Year
  Sex: Male
  Weight: 66 kg

DRUGS (19)
  1. DUODOPA [Suspect]
     Active Substance: CARBIDOPA\LEVODOPA
     Dosage: MD: 12 ML, CD: 4.8 ML/HR X 16 HR, ED: 2.0 ML/UNIT X 1
     Route: 050
     Dates: start: 20171030, end: 20180905
  2. ROTIGOTINE [Concomitant]
     Active Substance: ROTIGOTINE
     Indication: PARKINSON^S DISEASE
     Route: 062
     Dates: start: 20171101, end: 20171101
  3. DUODOPA [Suspect]
     Active Substance: CARBIDOPA\LEVODOPA
     Indication: PARKINSON^S DISEASE
     Route: 050
     Dates: start: 2016
  4. PRAMIPEXOLE HYDROCHLORIDE HYDRATE [Concomitant]
     Active Substance: PRAMIPEXOLE DIHYDROCHLORIDE
     Indication: PARKINSON^S DISEASE
     Route: 048
     Dates: start: 20171021, end: 20171102
  5. DOMPERIDONE [Concomitant]
     Active Substance: DOMPERIDONE
     Indication: PRODUCT USED FOR UNKNOWN INDICATION
     Route: 048
  6. SOLIFENACIN SUCCINATE. [Concomitant]
     Active Substance: SOLIFENACIN SUCCINATE
     Indication: PRODUCT USED FOR UNKNOWN INDICATION
     Route: 048
  7. DUODOPA [Suspect]
     Active Substance: CARBIDOPA\LEVODOPA
     Dosage: MD: 12 ML CD: 4.6 ML/HR X 16 HRS ED: 2.0 ML/UNIT X 1 TIME
     Route: 050
     Dates: start: 20180905
  8. AMLODIPINE BESILATE [Concomitant]
     Active Substance: AMLODIPINE BESYLATE
     Indication: PRODUCT USED FOR UNKNOWN INDICATION
     Route: 048
  9. MIRABEGRON [Concomitant]
     Active Substance: MIRABEGRON
     Indication: PRODUCT USED FOR UNKNOWN INDICATION
     Route: 048
  10. ROTIGOTINE [Concomitant]
     Active Substance: ROTIGOTINE
     Route: 062
     Dates: start: 20171102
  11. SILODOSIN. [Concomitant]
     Active Substance: SILODOSIN
     Indication: PRODUCT USED FOR UNKNOWN INDICATION
     Route: 048
  12. DUODOPA [Suspect]
     Active Substance: CARBIDOPA\LEVODOPA
     Dosage: MD: 12 ML, CD: 4.5 ML/HR X 16 HR, ED: 2.0 ML/UNIT X 1
     Route: 050
     Dates: start: 20171026, end: 20171030
  13. ESZOPICLONE. [Concomitant]
     Active Substance: ESZOPICLONE
     Indication: PRODUCT USED FOR UNKNOWN INDICATION
     Route: 048
  14. AMANTADINE HYDROCHLORIDE. [Concomitant]
     Active Substance: AMANTADINE HYDROCHLORIDE
     Indication: DYSTONIA
     Route: 048
     Dates: start: 20180905
  15. LUBIPROSTONE [Concomitant]
     Active Substance: LUBIPROSTONE
     Indication: PARKINSON^S DISEASE
     Route: 048
     Dates: start: 20180606
  16. DUODOPA [Suspect]
     Active Substance: CARBIDOPA\LEVODOPA
     Dosage: MD: 9 ML, CD: 4.5 ML/HR X 16 HR, ED: 2.0 ML/UNIT X 1
     Route: 050
     Dates: start: 20171018, end: 20171026
  17. DONEPEZIL HYDROCHLORIDE. [Concomitant]
     Active Substance: DONEPEZIL HYDROCHLORIDE
     Indication: PRODUCT USED FOR UNKNOWN INDICATION
     Route: 048
  18. CANDESARTAN CILEXETIL. [Concomitant]
     Active Substance: CANDESARTAN CILEXETIL
     Indication: PRODUCT USED FOR UNKNOWN INDICATION
     Route: 048
  19. CARBIDOPA HYDRATE?LEVODOPA MIXT [Concomitant]
     Indication: PARKINSON^S DISEASE
     Route: 048
     Dates: start: 20180304, end: 20180307

REACTIONS (9)
  - Fall [Unknown]
  - Loss of consciousness [Unknown]
  - Nausea [Recovered/Resolved]
  - Cataract [Not Recovered/Not Resolved]
  - Mobility decreased [Unknown]
  - Stoma site hypergranulation [Not Recovered/Not Resolved]
  - On and off phenomenon [Unknown]
  - Musculoskeletal stiffness [Unknown]
  - Hallucination [Unknown]

NARRATIVE: CASE EVENT DATE: 20171201
